FAERS Safety Report 8195370-5 (Version None)
Quarter: 2012Q1

REPORT INFORMATION
  Report Type: 
  Country: None (occurrence: None)
  Receive Date: 20120308
  Receipt Date: 20120306
  Transmission Date: 20120608
  Serious: Yes (Death)
  Sender: FDA-Public Use
  Company Number: US-GLAXOSMITHKLINE-A0969020A

PATIENT
  Age: 47 Year
  Sex: Female
  Weight: 118.6 kg

DRUGS (2)
  1. XANAX [Concomitant]
  2. ADVAIR DISKUS 100/50 [Suspect]
     Indication: COUGH
     Route: 055
     Dates: end: 20100101

REACTIONS (2)
  - VENTRICULAR FIBRILLATION [None]
  - SUDDEN CARDIAC DEATH [None]
